FAERS Safety Report 13436407 (Version 7)
Quarter: 2018Q4

REPORT INFORMATION
  Report Type: Spontaneous
  Country: US (occurrence: US)
  Receive Date: 20170413
  Receipt Date: 20181203
  Transmission Date: 20190204
  Serious: Yes (Hospitalization, Other)
  Sender: FDA-Public Use
  Company Number: US-PFIZER INC-2017159213

PATIENT
  Age: 91 Year
  Sex: Female

DRUGS (53)
  1. PREDNISONE. [Concomitant]
     Active Substance: PREDNISONE
     Indication: RHEUMATOID ARTHRITIS
     Dosage: UNK, 1X/DAY (5-10 MG 1DAY)
  2. TYLENOL [Concomitant]
     Active Substance: ACETAMINOPHEN
     Indication: MYALGIA
     Dosage: 650 MG, AS NEEDED (TAKE 650 MG BY MOUTH EVERY 8 (EIGHT) HOURS AS NEEDED)
     Route: 048
  3. LIPITOR [Concomitant]
     Active Substance: ATORVASTATIN CALCIUM
     Dosage: 40 MG, 1X/DAY (TAKE 1 TABLET (40 MG TOTAL) BY MOUTH DAILY.)
     Route: 048
  4. COLACE [Concomitant]
     Active Substance: DOCUSATE SODIUM
     Dosage: 100 MG, 2X/DAY
  5. LASIX [Concomitant]
     Active Substance: FUROSEMIDE
     Dosage: 20 MG, 2X/DAY (TAKE 20 MG BY MOUTH 2 (TWO) TIMES DAILY)
     Route: 048
  6. MIRALAX [Concomitant]
     Active Substance: POLYETHYLENE GLYCOL 3350
     Dosage: 17 G, DAILY (TAKE 17 G BY MOUTH DAILY)
     Route: 048
  7. CEFTIN [CEFUROXIME AXETIL] [Concomitant]
     Dosage: 250 MG, 2X/DAY
     Route: 048
  8. ATIVAN [Concomitant]
     Active Substance: LORAZEPAM
     Indication: ANXIETY
     Dosage: 0.5 MG, AS NEEDED (TAKE 0.5 MG BY MOUTH EVERY 6 (SIX) HOURS AS NEEDED)
     Route: 048
  9. CULTURELLE FOR KIDS [LACTOBACILLUS RHAMNOSUS] [Concomitant]
     Dosage: 1 DF, 1X/DAY (TAKE 1 CAPSULE BY MOUTH DAILY)
     Route: 048
  10. DELTASONE [PREDNISONE] [Concomitant]
     Indication: RHEUMATOID ARTHRITIS
     Dosage: UNK (; TAKE 1.5 TABLET BY MOUTH MAY INCREASE TO 2 TABLETS)
     Route: 048
  11. CALTRATE WITH VITAMIN D [Concomitant]
     Active Substance: CALCIUM CARBONATE\CHOLECALCIFEROL
     Dosage: UNK
     Route: 048
  12. LOMOTIL [ATROPINE SULFATE;DIPHENOXYLATE HYDROCHLORIDE] [Concomitant]
     Indication: DIARRHOEA
     Dosage: UNK UNK, AS NEEDED (2.5-0.025 MG PER TABLET)
     Route: 048
  13. ELOCON [Concomitant]
     Active Substance: MOMETASONE FUROATE
     Dosage: UNK (DAILY APPLIED TO EACH EAR CANAL NIGHTLY FOR 3 NIGHTS. CYCLE MAY BE REPEATED EVERY 7 NIGHTS)
     Route: 061
  14. FOLIC ACID/IRON/L-METHYLFOLATE/MULTIVITAMINS/MINERALS [Concomitant]
     Dosage: UNK (3,500-18-0.4 UNIT-MG-MG CHEW)
     Route: 048
  15. ELIQUIS [Concomitant]
     Active Substance: APIXABAN
     Dosage: 2.5 MG, 2X/DAY (TAKE 1 TABLET (2.5 MG TOTAL) BY MOUTH 2 (TWO) TIMES DAILY)
     Route: 048
  16. FOLVITE [FOLIC ACID] [Concomitant]
     Dosage: 1 MG, 1X/DAY (TAKE 1 MG BY MOUTH DAILY)
     Route: 048
  17. LASIX [Concomitant]
     Active Substance: FUROSEMIDE
     Dosage: 20 MG, AS NEEDED
     Route: 048
  18. NEURONTIN [Concomitant]
     Active Substance: GABAPENTIN
     Dosage: 100 MG, 1X/DAY (TAKE 1 CAPSULE (100 MG TOTAL) BY MOUTH NIGHTLY)
     Route: 048
  19. LEVOTHYROXINE [LEVOTHYROXINE SODIUM] [Concomitant]
     Dosage: 50 UG, 1X/DAY
     Route: 048
  20. LOFIBRA [FENOFIBRATE] [Concomitant]
     Dosage: 200 MG, 1X/DAY (TAKE 200 MG BY MOUTH DAILY BEFORE MEAL)
     Route: 048
  21. K-DUR [Concomitant]
     Active Substance: POTASSIUM CHLORIDE
     Dosage: 20 MEQ, 2X/DAY (TAKE 1 TABLET (20 MEQ TOTAL) BY MOUTH 2 (TWO) TIMES DAILY WITH MEALS)
     Route: 048
  22. RESTORIL [TEMAZEPAM] [Concomitant]
     Indication: SLEEP DISORDER
     Dosage: 15 MG, AS NEEDED (TAKE 15 MG BY MOUTH NIGHTLY AS NEEDED)
     Route: 048
  23. ULTRACET [Concomitant]
     Active Substance: ACETAMINOPHEN\TRAMADOL HYDROCHLORIDE
     Indication: MYALGIA
     Dosage: 1 DF, AS NEEDED (37.5-325 MG PER TABLET TAKE 1 TABLET BY MOUTH NIGHTLY AS NEEDED)
     Route: 048
  24. DELTASONE [PREDNISONE] [Concomitant]
     Dosage: UNK (TAKE 1 TABLET (5 MG TOTAL) BY MOUTH DAILY AND 1/2 TAB EVERY AFTERNOON)
     Route: 048
  25. PLAQUENIL [HYDROXYCHLOROQUINE PHOSPHATE] [Concomitant]
     Active Substance: HYDROXYCHLOROQUINE DIPHOSPHATE
     Dosage: 200 MG, 1X/DAY (TAKE 1 TABLET (200 MG TOTAL) BY MOUTH DAILY)
     Route: 048
  26. ZANTAC [Concomitant]
     Active Substance: RANITIDINE HYDROCHLORIDE
     Dosage: 75 MG, 2X/DAY (TAKE 75 MG BY MOUTH 2 (TWO) TIMES DAILY)
     Route: 048
  27. MAG-OX [Concomitant]
     Active Substance: MAGNESIUM OXIDE
     Dosage: 400 MG, UNK
  28. NEURONTIN [Concomitant]
     Active Substance: GABAPENTIN
     Dosage: 100 MG, 2X/DAY (TAKE 1 CAPSULE (100 MG TOTAL) BY MOUTH 2 (TWO) TIMES DAILY)
     Route: 048
  29. LIDODERM [Concomitant]
     Active Substance: LIDOCAINE
     Dosage: UNK
  30. VOSOL [ACETIC ACID] [Concomitant]
     Dosage: 5 GTT, 2X/DAY
  31. BIOTIN [Concomitant]
     Active Substance: BIOTIN
     Dosage: 5000 UG, 3X/DAY
     Route: 048
  32. LUTEIN-ZEAXANTHIN [Concomitant]
     Dosage: UNK (25-5 MG CAP)
     Route: 048
  33. PROTONIX [PANTOPRAZOLE SODIUM SESQUIHYDRATE] [Concomitant]
     Dosage: 40 MG, UNK
  34. SODIUM CHLORIDE. [Concomitant]
     Active Substance: SODIUM CHLORIDE
     Dosage: 1 G, UNK
  35. XELJANZ [Suspect]
     Active Substance: TOFACITINIB CITRATE
     Indication: RHEUMATOID ARTHRITIS
     Dosage: 5 MG, 2X/DAY
     Route: 048
     Dates: start: 2016
  36. XANAX [Concomitant]
     Active Substance: ALPRAZOLAM
     Dosage: 0.25 MG, 2X/DAY (TAKE 0.25 MG BY MOUTH 2 (TWO) TIMES DAILY)
     Route: 048
  37. NORVASC [Concomitant]
     Active Substance: AMLODIPINE BESYLATE
     Dosage: 5 MG, 2X/DAY (TAKE ONE TABLET BY MOUTH TWICE DAILY)
     Route: 048
  38. IMDUR [Concomitant]
     Active Substance: ISOSORBIDE MONONITRATE
     Dosage: 30 MG, 1X/DAY
     Route: 048
  39. LIDODERM [Concomitant]
     Active Substance: LIDOCAINE
     Dosage: 1 DF, DAILY (PLACE 1 PATCH ONTO THE SKIN DAILY)
     Route: 061
  40. BETAPACE [Concomitant]
     Active Substance: SOTALOL HYDROCHLORIDE
     Dosage: 80 MG, 2X/DAY (TAKE 80 MG BY MOUTH 2 (TWO) TIMES DAILY)
     Route: 048
  41. SENNA-S [DOCUSATE SODIUM;SENNOSIDE A+B] [Concomitant]
     Dosage: 8.6 MG, AS NEEDED (TAKE 8.6 MG BY MOUTH AS NEEDED)
     Route: 048
  42. SYNTHROID [Concomitant]
     Active Substance: LEVOTHYROXINE SODIUM
     Dosage: 50 UG, 1X/DAY (TAKE 1 TABLET (50 MCG TOTAL) BY MOUTH EVERY MORNING)
     Route: 048
  43. TUMS [Concomitant]
     Active Substance: CALCIUM CARBONATE
     Dosage: 200 MG, 2X/DAY (CHEW 2 TABLETS BY MOUTH DAILY)
     Route: 048
  44. TUMS [Concomitant]
     Active Substance: CALCIUM CARBONATE
     Dosage: 200 MG, 2X/DAY (CHEW 2 TABLETS BY MOUTH DAILY.)
     Route: 048
  45. IMDUR [Concomitant]
     Active Substance: ISOSORBIDE MONONITRATE
     Dosage: 30 MG, 1X/DAY (TAKE ONE TABLET BY MOUTH EVERY MORNING)
     Route: 048
  46. LEVOTHYROXINE [LEVOTHYROXINE SODIUM] [Concomitant]
     Dosage: 75 UG, DAILY (TAKE 75 MCG BY MOUTH DAILY)
     Route: 048
  47. NITROSTAT [Concomitant]
     Active Substance: NITROGLYCERIN
     Indication: CHEST PAIN
     Dosage: 0.4 MG, AS NEEDED (0.4 MG UNDER THE TONGUE EVERY 5 (FIVE) MINUTES AS NEEDED)
     Route: 060
  48. DELTASONE [PREDNISONE] [Concomitant]
     Dosage: 5 MG, AS NEEDED (TAKE 1 TABLET (5 MG TOTAL) BY MOUTH DAILY MAY INCREASE TO 10 MG PRN RA FLARE)
     Route: 048
  49. ASPIRIN [ACETYLSALICYLIC ACID] [Concomitant]
     Active Substance: ASPIRIN
     Dosage: 81 MG, DAILY (TAKE 81 MG BY MOUTH DAILY)
     Route: 048
  50. PREMARIN [Concomitant]
     Active Substance: ESTROGENS, CONJUGATED
     Dosage: 0.3 MG, 1X/DAY (TAKE 1 TABLET (0 .3 MG TOTAL) BY MOUTH DAILY)
     Route: 048
  51. ADVIL [IBUPROFEN] [Concomitant]
     Active Substance: IBUPROFEN
     Indication: PAIN
     Dosage: 200 MG, AS NEEDED (TAKE 200 MG BY MOUTH EVERY 6 (SIX) HOURS AS NEEDED)
     Route: 048
  52. PHENERGAN [PROMETHAZINE HYDROCHLORIDE] [Concomitant]
     Indication: NAUSEA
     Dosage: 25 MG, AS NEEDED (TAKE 25 MG BY MOUTH EVERY 6 (SIX) HOURS AS NEEDED)
     Route: 048
  53. LEVOTHROID [Concomitant]
     Active Substance: LEVOTHYROXINE SODIUM
     Dosage: 50 UG, 1X/DAY (TAKE 1 TABLET (50 MCG TOTAL) BY MOUTH EVERY MORNING)
     Route: 048

REACTIONS (33)
  - Influenza [Unknown]
  - Myalgia [Unknown]
  - Nervousness [Unknown]
  - Anxiety [Unknown]
  - Oedema peripheral [Unknown]
  - Peripheral swelling [Recovered/Resolved]
  - Joint swelling [Unknown]
  - Glomerular filtration rate decreased [Not Recovered/Not Resolved]
  - Arthralgia [Unknown]
  - Hand deformity [Unknown]
  - Photophobia [Unknown]
  - Confusional state [Unknown]
  - Renal impairment [Unknown]
  - Urinary tract infection [Recovered/Resolved]
  - Tooth disorder [Unknown]
  - Post herpetic neuralgia [Unknown]
  - Oedema [Not Recovered/Not Resolved]
  - Deafness [Unknown]
  - Acute kidney injury [Unknown]
  - Dementia [Not Recovered/Not Resolved]
  - Joint range of motion decreased [Recovered/Resolved]
  - Joint range of motion decreased [Not Recovered/Not Resolved]
  - Herpes zoster [Unknown]
  - Visual impairment [Unknown]
  - Joint range of motion decreased [Unknown]
  - Cerebrovascular accident [Unknown]
  - Dysarthria [Unknown]
  - Memory impairment [Unknown]
  - Cognitive disorder [Unknown]
  - Agitation [Unknown]
  - Depressed mood [Unknown]
  - Tenderness [Unknown]
  - Joint swelling [Recovered/Resolved]

NARRATIVE: CASE EVENT DATE: 20180112
